FAERS Safety Report 12677960 (Version 8)
Quarter: 2018Q3

REPORT INFORMATION
  Report Type: Report from Study
  Country: US (occurrence: US)
  Receive Date: 20160823
  Receipt Date: 20180920
  Transmission Date: 20181010
  Serious: Yes (Life-Threatening)
  Sender: FDA-Public Use
  Company Number: US-CELGENEUS-USA-2016085729

PATIENT
  Age: 75 Year
  Sex: Female

DRUGS (29)
  1. MPDL3280A (ATEZOLIZUMAB) [Suspect]
     Active Substance: ATEZOLIZUMAB
     Indication: NON-SMALL CELL LUNG CANCER STAGE IV
     Dosage: 1200 MILLIGRAM
     Route: 041
     Dates: start: 20160627, end: 20160728
  2. ALBUTEROL SULFATE. [Concomitant]
     Active Substance: ALBUTEROL SULFATE
     Indication: CHRONIC OBSTRUCTIVE PULMONARY DISEASE
     Route: 065
  3. BENADRYL [Concomitant]
     Active Substance: DIPHENHYDRAMINE HYDROCHLORIDE
     Indication: NAUSEA
     Route: 065
     Dates: start: 20160627
  4. CITALOPRAM HYDROBROMIDE. [Concomitant]
     Active Substance: CITALOPRAM HYDROBROMIDE
     Indication: DEPRESSION
     Route: 065
  5. DILTIAZEM HCL [Concomitant]
     Active Substance: DILTIAZEM HYDROCHLORIDE
     Indication: HYPERTENSION
     Route: 065
  6. ONDANSETRON [Concomitant]
     Active Substance: ONDANSETRON
     Indication: VOMITING
  7. ABRAXANE [Suspect]
     Active Substance: PACLITAXEL
     Indication: NON-SMALL CELL LUNG CANCER STAGE IV
     Dosage: 100 MILLIGRAM/SQ. METER
     Route: 041
     Dates: start: 20160627
  8. ATORVASTATIN CALCIUM. [Concomitant]
     Active Substance: ATORVASTATIN CALCIUM
     Indication: HYPERLIPIDAEMIA
     Route: 065
  9. CYCLOBENZAPRINE. [Concomitant]
     Active Substance: CYCLOBENZAPRINE
     Indication: ARTHRITIS
     Route: 065
     Dates: start: 20160324
  10. CARBOPLATIN. [Suspect]
     Active Substance: CARBOPLATIN
     Dosage: 572 MILLIGRAM
     Route: 041
     Dates: start: 20160627
  11. FUROSEMIDE. [Concomitant]
     Active Substance: FUROSEMIDE
     Indication: OEDEMA
     Route: 065
  12. DOXYCYCLINE HYCLATE. [Concomitant]
     Active Substance: DOXYCYCLINE HYCLATE
     Indication: COUGH
     Route: 065
  13. CARBOPLATIN. [Suspect]
     Active Substance: CARBOPLATIN
     Indication: NON-SMALL CELL LUNG CANCER STAGE IV
     Dosage: 6 MG/ML/MIN AUC
     Route: 041
     Dates: start: 20160627
  14. SPIRIVA [Concomitant]
     Active Substance: TIOTROPIUM BROMIDE MONOHYDRATE
     Indication: CHRONIC OBSTRUCTIVE PULMONARY DISEASE
     Route: 065
  15. DICLOFENAC [Concomitant]
     Active Substance: DICLOFENAC
     Indication: ARTHRITIS
     Route: 065
     Dates: start: 20160414
  16. PALONOSETRON. [Concomitant]
     Active Substance: PALONOSETRON HYDROCHLORIDE
     Indication: NAUSEA
     Route: 065
     Dates: start: 20160627, end: 20160808
  17. ABRAXANE [Suspect]
     Active Substance: PACLITAXEL
     Dosage: 142 MILLIGRAM
     Route: 041
     Dates: start: 20160808
  18. FORMOTEROL FUMARATE [Concomitant]
     Active Substance: FORMOTEROL FUMARATE
     Indication: CHRONIC OBSTRUCTIVE PULMONARY DISEASE
     Route: 065
  19. VITAMIN D3 [Concomitant]
     Active Substance: CHOLECALCIFEROL
     Indication: PRODUCT USED FOR UNKNOWN INDICATION
     Route: 065
  20. LEVAQUIN [Concomitant]
     Active Substance: LEVOFLOXACIN
     Indication: CHRONIC OBSTRUCTIVE PULMONARY DISEASE
     Route: 065
     Dates: start: 20160627
  21. ACETAMINOPHEN/HYDROCODONE [Concomitant]
     Active Substance: ACETAMINOPHEN\HYDROCODONE
     Indication: NEOPLASM MALIGNANT
  22. BENADRYL [Concomitant]
     Active Substance: DIPHENHYDRAMINE HYDROCHLORIDE
     Indication: VOMITING
  23. PALONOSETRON. [Concomitant]
     Active Substance: PALONOSETRON HYDROCHLORIDE
     Indication: VOMITING
  24. ABRAXANE [Suspect]
     Active Substance: PACLITAXEL
     Dosage: 190 MILLIGRAM/SQ. METER
     Route: 041
     Dates: start: 20160706
  25. CARBOPLATIN. [Suspect]
     Active Substance: CARBOPLATIN
     Dosage: 424 MILLIGRAM
     Route: 041
     Dates: start: 20160728
  26. ONDANSETRON [Concomitant]
     Active Substance: ONDANSETRON
     Indication: NAUSEA
     Route: 065
     Dates: start: 20160629
  27. ACETAMINOPHEN/HYDROCODONE [Concomitant]
     Active Substance: ACETAMINOPHEN\HYDROCODONE
     Indication: ARTHRITIS
     Route: 065
     Dates: start: 20150611
  28. ZOFRAN [Concomitant]
     Active Substance: ONDANSETRON HYDROCHLORIDE
     Indication: NAUSEA
     Route: 065
     Dates: start: 20160627
  29. ZOFRAN [Concomitant]
     Active Substance: ONDANSETRON HYDROCHLORIDE
     Indication: VOMITING

REACTIONS (3)
  - Neutropenia [Recovered/Resolved]
  - Thrombocytopenia [Recovered/Resolved]
  - Neutropenia [Recovered/Resolved]

NARRATIVE: CASE EVENT DATE: 20160714
